FAERS Safety Report 21976577 (Version 6)
Quarter: 2024Q2

REPORT INFORMATION
  Report Type: Spontaneous
  Country: US (occurrence: US)
  Receive Date: 20230210
  Receipt Date: 20240429
  Transmission Date: 20240716
  Serious: No
  Sender: FDA-Public Use
  Company Number: US-PFIZER INC-202300058237

PATIENT
  Age: 11 Year
  Sex: Female

DRUGS (1)
  1. GENOTROPIN [Suspect]
     Active Substance: SOMATROPIN
     Indication: Growth hormone deficiency
     Dosage: 2 MG, DAILY
     Dates: start: 20230203, end: 20230206

REACTIONS (7)
  - Injection site pruritus [Unknown]
  - Injection site erythema [Unknown]
  - Device use error [Unknown]
  - Device breakage [Unknown]
  - Poor quality device used [Unknown]
  - Rash [Recovered/Resolved]
  - Vision blurred [Recovered/Resolved]

NARRATIVE: CASE EVENT DATE: 20230201
